FAERS Safety Report 21409770 (Version 2)
Quarter: 2022Q4

REPORT INFORMATION
  Report Type: Report from Study
  Country: US (occurrence: US)
  Receive Date: 20221005
  Receipt Date: 20221203
  Transmission Date: 20230113
  Serious: Yes (Other)
  Sender: FDA-Public Use
  Company Number: US-ABBVIE-4138991

PATIENT
  Sex: Male
  Weight: 87 kg

DRUGS (8)
  1. SKYRIZI [Suspect]
     Active Substance: RISANKIZUMAB-RZAA
     Indication: Psoriasis
     Dosage: FORM STRENGTH 150 MG
     Route: 058
     Dates: start: 2021
  2. MODERNA COVID-19 VACCINE [Concomitant]
     Active Substance: ELASOMERAN
     Indication: COVID-19 immunisation
     Dosage: 3 DOSE?ONE IN ONCE
     Route: 030
     Dates: start: 20211129, end: 20211129
  3. MODERNA COVID-19 VACCINE [Concomitant]
     Active Substance: ELASOMERAN
     Indication: COVID-19 immunisation
     Dosage: 1 DOSE?ONE IN ONCE
     Route: 030
     Dates: start: 20210225, end: 20210225
  4. MODERNA COVID-19 VACCINE [Concomitant]
     Active Substance: ELASOMERAN
     Indication: COVID-19 immunisation
     Dosage: 2 DOSE?ONE IN ONCE
     Route: 030
     Dates: start: 20210318, end: 20210318
  5. MELOXICAM [Concomitant]
     Active Substance: MELOXICAM
     Indication: Back pain
  6. LISINOPRIL [Concomitant]
     Active Substance: LISINOPRIL
     Indication: Hypertension
  7. METFORMIN [Concomitant]
     Active Substance: METFORMIN HYDROCHLORIDE
     Indication: Diabetes mellitus
  8. SIMVASTATIN [Concomitant]
     Active Substance: SIMVASTATIN
     Indication: Blood cholesterol increased

REACTIONS (3)
  - Intervertebral disc degeneration [Not Recovered/Not Resolved]
  - Spinal cord operation [Unknown]
  - Gait disturbance [Not Recovered/Not Resolved]
